FAERS Safety Report 9440218 (Version 1)
Quarter: 2013Q3

REPORT INFORMATION
  Report Type: Spontaneous
  Country: JP (occurrence: JP)
  Receive Date: 20130805
  Receipt Date: 20130805
  Transmission Date: 20140515
  Serious: Yes (Other)
  Sender: FDA-Public Use
  Company Number: PHHY2013JP082996

PATIENT
  Sex: Male

DRUGS (2)
  1. DIOVAN [Suspect]
     Dosage: UNK
     Route: 048
  2. SIGMART [Suspect]
     Dosage: UNK

REACTIONS (2)
  - Myocardial infarction [Unknown]
  - Pain in extremity [Unknown]
